FAERS Safety Report 8331520-5 (Version None)
Quarter: 2012Q2

REPORT INFORMATION
  Report Type: 
  Country: None (occurrence: None)
  Receive Date: 20120502
  Receipt Date: 20120419
  Transmission Date: 20120825
  Serious: No
  Sender: FDA-Public Use
  Company Number: US-AMGEN-USASP2012024904

PATIENT
  Age: 37 Year
  Sex: Male

DRUGS (1)
  1. ENBREL [Suspect]
     Indication: ANKYLOSING SPONDYLITIS
     Dosage: 50 MG, QWK
     Dates: start: 20040901, end: 20120401

REACTIONS (5)
  - HUMAN BITE [None]
  - APHTHOUS STOMATITIS [None]
  - BACK PAIN [None]
  - PRODUCTIVE COUGH [None]
  - NASOPHARYNGITIS [None]
